FAERS Safety Report 10306010 (Version 4)
Quarter: 2015Q2

REPORT INFORMATION
  Report Type: Report from Study
  Country: US (occurrence: US)
  Receive Date: 20140715
  Receipt Date: 20150410
  Transmission Date: 20150821
  Serious: Yes (Death, Hospitalization, Other)
  Sender: FDA-Public Use
  Company Number: US-GILEAD-2014-0108367

PATIENT
  Age: 70 Year
  Sex: Male

DRUGS (3)
  1. ASA [Concomitant]
     Active Substance: ASPIRIN
     Dosage: 81 MG, UNK
  2. AMBRISENTAN [Suspect]
     Active Substance: AMBRISENTAN
     Indication: PULMONARY HYPERTENSION
     Dosage: 10 MG, UNK
     Route: 065
     Dates: start: 20131111
  3. AMBRISENTAN [Suspect]
     Active Substance: AMBRISENTAN
     Indication: CARDIAC DISORDER

REACTIONS (4)
  - Mass [Not Recovered/Not Resolved]
  - Gallbladder disorder [Not Recovered/Not Resolved]
  - Cholelithiasis [Recovered/Resolved]
  - Gastrointestinal carcinoma [Fatal]
